FAERS Safety Report 9014671 (Version 1)
Quarter: 2013Q1

REPORT INFORMATION
  Report Type: Spontaneous
  Country: US (occurrence: US)
  Receive Date: 20130115
  Receipt Date: 20130115
  Transmission Date: 20140127
  Serious: Yes (Hospitalization)
  Sender: FDA-Public Use
  Company Number: US-BAYER-2013-004541

PATIENT
  Age: 43 Year
  Sex: Female
  Weight: 96.82 kg

DRUGS (4)
  1. YAZ [Suspect]
     Indication: HORMONE REPLACEMENT THERAPY
  2. SYNTHROID [Concomitant]
  3. IBUPROFEN [Concomitant]
  4. LEVOTHYROXINE [Concomitant]

REACTIONS (1)
  - Deep vein thrombosis [None]
